FAERS Safety Report 8877649 (Version 1)
Quarter: 2012Q4

REPORT INFORMATION
  Report Type: Spontaneous
  Country: US (occurrence: None)
  Receive Date: 20121031
  Receipt Date: 20121031
  Transmission Date: 20130627
  Serious: No
  Sender: FDA-Public Use
  Company Number: None

PATIENT
  Age: 30 Year
  Sex: Female

DRUGS (1)
  1. MIRENA IUD [Suspect]
     Indication: BIRTH CONTROL

REACTIONS (4)
  - Ovarian cyst [None]
  - Borderline ovarian tumour [None]
  - Menorrhagia [None]
  - Menstruation irregular [None]
